FAERS Safety Report 4512185-7 (Version None)
Quarter: 2004Q4

REPORT INFORMATION
  Report Type: 
  Country: None (occurrence: None)
  Receive Date: 20041129
  Receipt Date: 20041122
  Transmission Date: 20050328
  Serious: Yes (Hospitalization)
  Sender: FDA-Public Use
  Company Number: FR-ROCHE-386940

PATIENT
  Age: 58 Year
  Sex: Male

DRUGS (5)
  1. RIVOTRIL [Suspect]
     Indication: DRUG USE FOR UNKNOWN INDICATION
     Route: 048
     Dates: start: 20040415, end: 20040901
  2. DEROXAT [Suspect]
     Indication: DEPRESSION
     Route: 048
     Dates: end: 20040901
  3. VIOXX [Suspect]
     Route: 048
     Dates: start: 20040815, end: 20040901
  4. TERCIAN [Suspect]
     Indication: DEPRESSION
     Route: 048
     Dates: end: 20040901
  5. INVESTIGATIONAL DRUG NOS [Suspect]
     Indication: DRUG USE FOR UNKNOWN INDICATION
     Dosage: DRUG NAME: TEMERIT
     Route: 048
     Dates: end: 20040901

REACTIONS (4)
  - HEPATIC STEATOSIS [None]
  - HEPATITIS [None]
  - HEPATITIS ALCOHOLIC [None]
  - HEPATOMEGALY [None]
